FAERS Safety Report 7871406-3 (Version None)
Quarter: 2011Q4

REPORT INFORMATION
  Report Type: 
  Country: None (occurrence: None)
  Receive Date: 20111029
  Receipt Date: 20110302
  Transmission Date: 20120403
  Serious: No
  Sender: FDA-Public Use
  Company Number: US-AMGEN-USASP2010007187

PATIENT
  Age: 74 Year
  Sex: Male

DRUGS (3)
  1. ENBREL [Suspect]
     Indication: PSORIATIC ARTHROPATHY
  2. ENBREL [Suspect]
     Indication: RHEUMATOID ARTHRITIS
  3. ENBREL [Suspect]
     Indication: PSORIASIS
     Dosage: 50 MG, QWK
     Dates: start: 20040101

REACTIONS (7)
  - ONYCHOCLASIS [None]
  - PSORIATIC ARTHROPATHY [None]
  - BLISTER [None]
  - ACNE [None]
  - PSORIASIS [None]
  - PRURITUS [None]
  - SKIN EXFOLIATION [None]
